FAERS Safety Report 9517010 (Version 1)
Quarter: 2013Q3

REPORT INFORMATION
  Report Type: Spontaneous
  Country: US (occurrence: US)
  Receive Date: 20130911
  Receipt Date: 20130911
  Transmission Date: 20140515
  Serious: No
  Sender: FDA-Public Use
  Company Number: US-PFIZER INC-2013258559

PATIENT
  Age: 77 Year
  Sex: Female
  Weight: 45.35 kg

DRUGS (7)
  1. LIPITOR [Suspect]
     Indication: BLOOD CHOLESTEROL INCREASED
     Dosage: 80 MG, 1X/DAY
     Route: 048
     Dates: start: 2004, end: 2006
  2. LIPITOR [Suspect]
     Dosage: 40 MG, 1X/DAY
     Route: 048
     Dates: start: 2012
  3. ASPIRIN [Concomitant]
     Dosage: 81 MG, 1X/DAY
  4. METOPROLOL [Concomitant]
     Dosage: 25 MG, 2X/DAY
  5. ISOSORBIDE [Concomitant]
     Dosage: 60 MG, 1X/DAY
  6. KEPPRA [Concomitant]
     Dosage: 250 MG, 3X/DAY
  7. COUMADIN [Concomitant]
     Dosage: UNK

REACTIONS (1)
  - Blood cholesterol abnormal [Unknown]
